FAERS Safety Report 15453181 (Version 1)
Quarter: 2018Q4

REPORT INFORMATION
  Report Type: Spontaneous
  Country: US (occurrence: US)
  Receive Date: 20181001
  Receipt Date: 20181001
  Transmission Date: 20190204
  Serious: No
  Sender: FDA-Public Use
  Company Number: US-SA-2018SA270672

PATIENT
  Age: 69 Year
  Sex: Male

DRUGS (1)
  1. DUPIXENT [Suspect]
     Active Substance: DUPILUMAB
     Dosage: 12TH INJECTION OF DUPIXENT

REACTIONS (7)
  - Dry eye [Unknown]
  - Swelling face [Unknown]
  - Lip dry [Unknown]
  - Erythema [Unknown]
  - Lip swelling [Unknown]
  - Injection site rash [Unknown]
  - Chapped lips [Unknown]
